FAERS Safety Report 10392378 (Version 2)
Quarter: 2014Q3

REPORT INFORMATION
  Report Type: Spontaneous
  Country: US (occurrence: None)
  Receive Date: 20140815
  Receipt Date: 20140904
  Transmission Date: 20150326
  Serious: Yes (Hospitalization)
  Sender: FDA-Public Use
  Company Number: 2478820

PATIENT
  Age: 58 Year
  Sex: Female
  Weight: 90.91 kg

DRUGS (1)
  1. LIDOCAINE HCL [Suspect]
     Active Substance: LIDOCAINE HYDROCHLORIDE
     Indication: HEADACHE
     Dates: start: 20140710, end: 20140710

REACTIONS (9)
  - Rash [None]
  - Off label use [None]
  - Injection site urticaria [None]
  - Pain in extremity [None]
  - Back pain [None]
  - Dyspnoea [None]
  - Hypoaesthesia [None]
  - Chest pain [None]
  - Chest discomfort [None]

NARRATIVE: CASE EVENT DATE: 20140710
